FAERS Safety Report 8857448 (Version 1)
Quarter: 2012Q4

REPORT INFORMATION
  Report Type: 
  Country: US (occurrence: US)
  Receive Date: 20121024
  Receipt Date: 20121024
  Transmission Date: 20130627
  Serious: No
  Sender: FDA-Public Use
  Company Number: US-BAYER-2012-111246

PATIENT
  Sex: Male

DRUGS (1)
  1. ALEVE GELCAP [Suspect]
     Dosage: 2 DF, BID,Every 12 Hours
     Dates: start: 20121017

REACTIONS (1)
  - No adverse event [None]
